FAERS Safety Report 7469339-X (Version None)
Quarter: 2011Q2

REPORT INFORMATION
  Report Type: 
  Country: None (occurrence: None)
  Receive Date: 20110506
  Receipt Date: 20110506
  Transmission Date: 20111010
  Serious: Yes (Other)
  Sender: FDA-Public Use
  Company Number: None

PATIENT
  Sex: Male
  Weight: 38.5557 kg

DRUGS (1)
  1. SINGULAIR [Suspect]
     Indication: ASTHMA
     Dosage: 5MG ONCE PER DAY PO
     Route: 048
     Dates: start: 20090401, end: 20110504

REACTIONS (8)
  - SUICIDAL IDEATION [None]
  - CRYING [None]
  - AGGRESSION [None]
  - OPPOSITIONAL DEFIANT DISORDER [None]
  - DEPRESSION [None]
  - ANXIETY [None]
  - AUTOPHOBIA [None]
  - HALLUCINATION, AUDITORY [None]
